FAERS Safety Report 7328714-4 (Version None)
Quarter: 2011Q1

REPORT INFORMATION
  Report Type: 
  Country: None (occurrence: None)
  Receive Date: 20110303
  Receipt Date: 20110222
  Transmission Date: 20110831
  Serious: Yes (Hospitalization, Other)
  Sender: FDA-Public Use
  Company Number: US-ASTRAZENECA-2010SE43765

PATIENT
  Age: 31 Year
  Sex: Female
  Weight: 99.8 kg

DRUGS (38)
  1. SIMVASTATIN [Concomitant]
     Route: 048
  2. BENICAR [Concomitant]
     Route: 048
  3. HUMULIN R [Concomitant]
     Dosage: 1-6 UNIT TID
     Route: 058
     Dates: start: 20100513
  4. NORVASC [Concomitant]
  5. GLIMEPIRIDE [Concomitant]
  6. KLONOPIN [Concomitant]
  7. TRAMADOL HCL [Concomitant]
     Indication: BACK PAIN
     Dosage: AS REQUIRED
  8. ULTRACET [Concomitant]
     Dosage: 37.5-325 MG, ONCE A DAY
  9. ERGOCALCIFEROL [Concomitant]
     Dosage: 50000 UNIT ONCE
     Route: 048
     Dates: start: 20100514
  10. NEXIUM [Suspect]
     Route: 048
     Dates: end: 20100507
  11. NORVASC [Concomitant]
  12. KLONOPIN [Concomitant]
     Dosage: AS NEEDED
  13. SOMA [Concomitant]
     Dosage: AS REQUIRED
  14. PEPCID AC [Concomitant]
     Route: 048
  15. MAGNESIUM SULFATE [Concomitant]
     Dosage: 3-4 GRAMS/100CC
     Route: 042
     Dates: start: 20100512
  16. CALCIUM CARBONATE [Concomitant]
     Route: 048
     Dates: start: 20100513
  17. LORATADINE [Concomitant]
     Route: 048
  18. JANUVIA [Concomitant]
     Indication: TYPE 2 DIABETES MELLITUS
  19. GLIMEPIRIDE [Concomitant]
  20. SODIUM CHLORIDE [Concomitant]
     Route: 042
  21. OLMESARTAN [Concomitant]
     Route: 048
     Dates: start: 20100512
  22. MAGNESIUM OXIDE [Concomitant]
     Route: 048
  23. TRAZODONE HCL [Concomitant]
  24. HEPARIN [Concomitant]
     Dosage: 5000 UNITS/1 ML 3 TIMES A DAY
     Dates: start: 20100513
  25. ACETAMINOPHEN [Concomitant]
     Route: 048
  26. PRILOSEC [Suspect]
     Dosage: DAILY
     Route: 048
     Dates: start: 19890101
  27. SITAGLIPTIN [Concomitant]
     Route: 048
     Dates: start: 20100513
  28. LOPERAMIDE [Concomitant]
     Route: 048
  29. TRAZODONE HCL [Concomitant]
     Dosage: 1-3  AS REQUIRED
  30. ZYRTEC [Concomitant]
     Route: 048
  31. LANTUS [Concomitant]
     Dosage: 100 UNITS/ML
  32. CETYLPYRIDINIUM/BEZOCAIN/MENTHOL [Concomitant]
  33. ACTIVASE [Concomitant]
     Dates: start: 20100513
  34. COMBIVENT [Concomitant]
     Route: 048
  35. AMARYL [Concomitant]
  36. VERAMYST [Concomitant]
     Route: 045
  37. FAMOTIDINE [Concomitant]
     Route: 048
     Dates: start: 20100512
  38. MAGNESIUM GLUCONATE [Concomitant]
     Dosage: 1000 MG EVERY TWO HOURS
     Route: 048
     Dates: start: 20100513

REACTIONS (79)
  - ABSCESS [None]
  - NASAL CONGESTION [None]
  - IRRITABILITY [None]
  - MUSCLE TWITCHING [None]
  - HIATUS HERNIA [None]
  - CHEST DISCOMFORT [None]
  - SOMATISATION DISORDER [None]
  - AGITATION [None]
  - INSOMNIA [None]
  - PYREXIA [None]
  - LEUKOCYTOSIS [None]
  - HYPERSOMNIA [None]
  - THROAT IRRITATION [None]
  - TACHYCARDIA [None]
  - APATHY [None]
  - LEARNING DISORDER [None]
  - DYSPNOEA [None]
  - UTERINE LEIOMYOMA [None]
  - MUSCLE ATROPHY [None]
  - PNEUMONIA [None]
  - POLLAKIURIA [None]
  - VISION BLURRED [None]
  - ARTHROPOD BITE [None]
  - POLYURIA [None]
  - ARRHYTHMIA [None]
  - FOOT FRACTURE [None]
  - HYPOMAGNESAEMIA [None]
  - DIARRHOEA [None]
  - BARRETT'S OESOPHAGUS [None]
  - HEARING IMPAIRED [None]
  - MENTAL STATUS CHANGES [None]
  - DEAFNESS [None]
  - PERSONALITY CHANGE [None]
  - CELLULITIS [None]
  - TYMPANIC MEMBRANE PERFORATION [None]
  - PARAESTHESIA [None]
  - EAR PAIN [None]
  - FATIGUE [None]
  - HEART RATE INCREASED [None]
  - TREMOR [None]
  - ELECTROLYTE IMBALANCE [None]
  - DIVERTICULUM INTESTINAL [None]
  - CONJUNCTIVITIS [None]
  - PERSONALITY DISORDER [None]
  - PALPITATIONS [None]
  - TOOTH LOSS [None]
  - TINNITUS [None]
  - MUSCLE SPASMS [None]
  - MEMORY IMPAIRMENT [None]
  - HAEMORRHOIDS [None]
  - PULMONARY HYPERTENSION [None]
  - CYSTITIS [None]
  - EAR PRURITUS [None]
  - BACK PAIN [None]
  - COUGH [None]
  - VOMITING [None]
  - OROPHARYNGEAL PAIN [None]
  - MITRAL VALVE PROLAPSE [None]
  - GENERALISED ANXIETY DISORDER [None]
  - URINARY TRACT INFECTION [None]
  - LIMB INJURY [None]
  - HYPOAESTHESIA [None]
  - SINUSITIS [None]
  - WEIGHT INCREASED [None]
  - NICOTINE DEPENDENCE [None]
  - CONFUSIONAL STATE [None]
  - NAUSEA [None]
  - CHANGE OF BOWEL HABIT [None]
  - APNOEA [None]
  - DELIRIUM [None]
  - BLOOD PRESSURE FLUCTUATION [None]
  - STRESS URINARY INCONTINENCE [None]
  - GASTRITIS [None]
  - STEATORRHOEA [None]
  - CHRONIC OBSTRUCTIVE PULMONARY DISEASE [None]
  - SLEEP APNOEA SYNDROME [None]
  - VERTIGO [None]
  - MUSCULAR WEAKNESS [None]
  - GASTROINTESTINAL DISORDER [None]
